FAERS Safety Report 20909688 (Version 2)
Quarter: 2022Q3

REPORT INFORMATION
  Report Type: Spontaneous
  Country: US (occurrence: US)
  Receive Date: 20220603
  Receipt Date: 20220727
  Transmission Date: 20221027
  Serious: No
  Sender: FDA-Public Use
  Company Number: US-BRISTOL-MYERS SQUIBB COMPANY-2022-040220

PATIENT
  Age: 81 Year
  Sex: Female

DRUGS (2)
  1. INREBIC [Suspect]
     Active Substance: FEDRATINIB HYDROCHLORIDE
     Indication: Product used for unknown indication
     Route: 048
     Dates: start: 20220205
  2. INREBIC [Suspect]
     Active Substance: FEDRATINIB HYDROCHLORIDE
     Dosage: DAILY
     Route: 048
     Dates: start: 20220505

REACTIONS (1)
  - Prescribed underdose [Unknown]

NARRATIVE: CASE EVENT DATE: 20220505
